FAERS Safety Report 23310599 (Version 2)
Quarter: 2024Q1

REPORT INFORMATION
  Report Type: Spontaneous
  Country: JP (occurrence: JP)
  Receive Date: 20231218
  Receipt Date: 20240324
  Transmission Date: 20240410
  Serious: Yes (Other)
  Sender: FDA-Public Use
  Company Number: JP-002147023-NVSJ2023JP017617

PATIENT
  Age: 72 Year
  Sex: Female
  Weight: 54 kg

DRUGS (4)
  1. ENTRESTO [Suspect]
     Active Substance: SACUBITRIL\VALSARTAN
     Indication: Hypertension
     Dosage: 200 MG, QD
     Route: 048
  2. ENTRESTO [Suspect]
     Active Substance: SACUBITRIL\VALSARTAN
     Dosage: 400 MG, QD
     Route: 048
  3. AMLODIPINE BESYLATE [Concomitant]
     Active Substance: AMLODIPINE BESYLATE
     Indication: Hypertension
     Dosage: 5 MG, BID
     Route: 048
  4. NIFEDIPINE [Concomitant]
     Active Substance: NIFEDIPINE
     Indication: Hypertension
     Dosage: 20 MG, BID
     Route: 048

REACTIONS (3)
  - Cardiac failure congestive [Unknown]
  - Blood pressure systolic increased [Unknown]
  - Off label use [Unknown]

NARRATIVE: CASE EVENT DATE: 20220422
